FAERS Safety Report 8698862 (Version 2)
Quarter: 2013Q4

REPORT INFORMATION
  Report Type: Spontaneous
  Country: US (occurrence: US)
  Receive Date: 20120802
  Receipt Date: 20131101
  Transmission Date: 20140711
  Serious: No
  Sender: FDA-Public Use
  Company Number: US-009507513-1207USA011673

PATIENT
  Age: 76 Year
  Sex: Male

DRUGS (4)
  1. NASONEX [Suspect]
     Indication: SEASONAL ALLERGY
     Dosage: NASAL SPRAY
     Route: 045
     Dates: start: 20120726, end: 20120726
  2. NASONEX [Suspect]
     Indication: EYE PRURITUS
  3. NASONEX [Suspect]
     Indication: EYE PAIN
  4. NASONEX [Suspect]
     Indication: NASAL CONGESTION

REACTIONS (1)
  - Drug ineffective [Not Recovered/Not Resolved]
